FAERS Safety Report 15800254 (Version 1)
Quarter: 2019Q1

REPORT INFORMATION
  Report Type: Spontaneous
  Country: QA (occurrence: QA)
  Receive Date: 20190108
  Receipt Date: 20190108
  Transmission Date: 20190417
  Serious: Yes (Other)
  Sender: FDA-Public Use
  Company Number: QA-MYLANLABS-2019M1000599

PATIENT
  Age: 26 Year
  Sex: Male

DRUGS (1)
  1. PHENYTOIN. [Suspect]
     Active Substance: PHENYTOIN
     Indication: EPILEPSY
     Route: 065

REACTIONS (7)
  - Coordination abnormal [Recovering/Resolving]
  - Confusional state [Recovering/Resolving]
  - Loss of proprioception [Recovering/Resolving]
  - Toxicity to various agents [Recovering/Resolving]
  - Vasogenic cerebral oedema [Recovering/Resolving]
  - Hyporeflexia [Recovering/Resolving]
  - Ataxia [Recovering/Resolving]
